FAERS Safety Report 15669527 (Version 9)
Quarter: 2020Q2

REPORT INFORMATION
  Report Type: Spontaneous
  Country: FR (occurrence: FR)
  Receive Date: 20181129
  Receipt Date: 20200507
  Transmission Date: 20200713
  Serious: Yes (Hospitalization)
  Sender: FDA-Public Use
  Company Number: FR-CELGENEUS-FRA-20181106708

PATIENT
  Age: 75 Year
  Sex: Male

DRUGS (24)
  1. AZACITIDINE. [Suspect]
     Active Substance: AZACITIDINE
     Indication: ACUTE MYELOID LEUKAEMIA
     Dosage: 75 MILLIGRAM/SQ. METER
     Route: 058
     Dates: start: 20180305, end: 20181021
  2. LASILIX [Concomitant]
     Active Substance: FUROSEMIDE
     Indication: OEDEMA PERIPHERAL
     Dosage: 20 MILLIGRAM
     Route: 041
     Dates: start: 20180328
  3. GUTRON [Concomitant]
     Active Substance: MIDODRINE
     Indication: ORTHOSTATIC HYPOTENSION
     Dosage: 2.5 MILLIGRAM
     Route: 048
     Dates: start: 20180614
  4. MICROLAX [Concomitant]
     Indication: CONSTIPATION
     Route: 054
     Dates: start: 20180527
  5. PROCORALAN [Concomitant]
     Active Substance: IVABRADINE
     Indication: MYOCARDIAL ISCHAEMIA
     Dosage: 5 MILLIGRAM
     Route: 048
     Dates: start: 20180618
  6. EXJADE [Concomitant]
     Active Substance: DEFERASIROX
     Dosage: 720 MILLIGRAM
     Route: 048
     Dates: start: 20181123
  7. MICROLAX [Concomitant]
     Dosage: 90 MILLIGRAM
     Route: 048
     Dates: start: 20180914, end: 20181102
  8. ALLOPURINOL. [Concomitant]
     Active Substance: ALLOPURINOL
     Indication: PROPHYLAXIS
     Dosage: 300 MILLIGRAM
     Route: 048
     Dates: start: 20180302
  9. FUROZEMIDE [Concomitant]
     Indication: PROPHYLAXIS
     Route: 041
     Dates: start: 20180307
  10. LASILIX [Concomitant]
     Active Substance: FUROSEMIDE
     Indication: PROPHYLAXIS
  11. EXJADE [Concomitant]
     Active Substance: DEFERASIROX
     Dosage: 90 MILLIGRAM
     Route: 048
     Dates: start: 20180914, end: 20181102
  12. EXJADE [Concomitant]
     Active Substance: DEFERASIROX
     Dosage: 90 MILLIGRAM
     Route: 048
     Dates: start: 20181123
  13. ESOMEPRAZOLE. [Concomitant]
     Active Substance: ESOMEPRAZOLE MAGNESIUM
     Indication: PROPHYLAXIS
     Dosage: 40 MILLIGRAM
     Route: 048
     Dates: start: 20180924
  14. FUNGIZONE [Concomitant]
     Active Substance: AMPHOTERICIN B
     Indication: PROPHYLAXIS
     Dosage: 2 DOSAGE FORMS
     Route: 050
     Dates: start: 20180924
  15. VENETOCLAX (VERUM) [Concomitant]
     Indication: ACUTE MYELOID LEUKAEMIA
     Dosage: 100 MILLIGRAM
     Route: 048
     Dates: start: 20180305, end: 20180305
  16. VENETOCLAX (VERUM) [Concomitant]
     Dosage: 400 MILLIGRAM
     Route: 048
     Dates: start: 20180307
  17. EXJADE [Concomitant]
     Active Substance: DEFERASIROX
     Dosage: 720 MILLIGRAM
     Route: 048
     Dates: start: 20181109, end: 20181114
  18. MICROLAX [Concomitant]
     Dosage: 720 MILLIGRAM
     Route: 048
     Dates: start: 20181109
  19. ALLOPURINOL. [Concomitant]
     Active Substance: ALLOPURINOL
     Indication: PROPHYLAXIS
  20. VENETOCLAX (VERUM) [Concomitant]
     Dosage: 200 MILLIGRAM
     Route: 048
     Dates: start: 20180306, end: 20180306
  21. ATORVASTATIN [Concomitant]
     Active Substance: ATORVASTATIN
     Indication: DYSLIPIDAEMIA
     Route: 048
     Dates: start: 2008
  22. EXJADE [Concomitant]
     Active Substance: DEFERASIROX
     Indication: IRON OVERLOAD
     Dosage: 1080 MILLIGRAM
     Route: 048
     Dates: start: 20180914, end: 20181102
  23. ELUDRIL [Concomitant]
     Indication: PROPHYLAXIS
     Dosage: 2 DOSAGE FORMS
     Route: 050
     Dates: start: 20180924
  24. BICARBONATE SODIUM [Concomitant]
     Active Substance: SODIUM BICARBONATE
     Indication: PROPHYLAXIS
     Dosage: 2 DOSAGE FORMS
     Route: 050
     Dates: start: 20180924

REACTIONS (3)
  - Colitis [Recovered/Resolved]
  - Gastroenteritis [Recovered/Resolved]
  - Febrile neutropenia [Recovered/Resolved]

NARRATIVE: CASE EVENT DATE: 20181102
